FAERS Safety Report 21836844 (Version 21)
Quarter: 2024Q2

REPORT INFORMATION
  Report Type: Spontaneous
  Country: US (occurrence: US)
  Receive Date: 20230109
  Receipt Date: 20240624
  Transmission Date: 20240716
  Serious: Yes (Hospitalization, Other)
  Sender: FDA-Public Use
  Company Number: US-SA-2023SA006100

PATIENT
  Age: 47 Year
  Sex: Male

DRUGS (4)
  1. ELOCTATE [Suspect]
     Active Substance: EFMOROCTOCOG ALFA
     Indication: Haemorrhage
     Dosage: 4000 IU (+/-10%), QW
     Route: 042
  2. ELOCTATE [Suspect]
     Active Substance: EFMOROCTOCOG ALFA
     Indication: Haemorrhage
     Dosage: 4000 IU (+/-10%), QW
     Route: 042
  3. ELOCTATE [Suspect]
     Active Substance: EFMOROCTOCOG ALFA
     Dosage: 4000 IU (+/-10%), PRN FOR ACUTE BLEEDING
     Route: 042
  4. ELOCTATE [Suspect]
     Active Substance: EFMOROCTOCOG ALFA
     Dosage: 4000 IU (+/-10%), PRN FOR ACUTE BLEEDING
     Route: 042

REACTIONS (24)
  - Gastrointestinal haemorrhage [Unknown]
  - Muscle haemorrhage [Unknown]
  - Haemorrhage [Recovering/Resolving]
  - Haemorrhage [Not Recovered/Not Resolved]
  - Haemorrhage [Unknown]
  - Arthropathy [Recovering/Resolving]
  - Spontaneous haemorrhage [Not Recovered/Not Resolved]
  - Soft tissue haemorrhage [Unknown]
  - Limb injury [Unknown]
  - Procedural pain [Not Recovered/Not Resolved]
  - Ligament sprain [Unknown]
  - Traumatic haemorrhage [Unknown]
  - Haemorrhage [Unknown]
  - Haemorrhage [Unknown]
  - Tooth disorder [Unknown]
  - Viral infection [Unknown]
  - Haemorrhage [Unknown]
  - Limb injury [Not Recovered/Not Resolved]
  - Haemorrhage [Unknown]
  - Haemorrhage [Unknown]
  - Haemorrhage [Recovered/Resolved]
  - Skin laceration [Unknown]
  - Surgery [Unknown]
  - Malaise [Unknown]

NARRATIVE: CASE EVENT DATE: 20230101
